FAERS Safety Report 25484655 (Version 1)
Quarter: 2025Q2

REPORT INFORMATION
  Report Type: Spontaneous
  Country: US (occurrence: None)
  Receive Date: 20250627
  Receipt Date: 20250627
  Transmission Date: 20250717
  Serious: Yes (Other)
  Sender: FDA-CTU
  Company Number: None

PATIENT
  Age: 65 Year
  Sex: Female
  Weight: 91.8 kg

DRUGS (22)
  1. MOUNJARO [Suspect]
     Active Substance: TIRZEPATIDE
     Indication: Diabetes mellitus
     Route: 058
     Dates: start: 20250514, end: 20250514
  2. MOUNJARO [Suspect]
     Active Substance: TIRZEPATIDE
     Indication: Weight control
  3. OZEMPIC [Suspect]
     Active Substance: SEMAGLUTIDE
  4. SYNTHROID [Concomitant]
     Active Substance: LEVOTHYROXINE SODIUM
  5. PEPCID AC MAXIMUM STRENGTH [Concomitant]
     Active Substance: FAMOTIDINE
  6. albuterol both liquid for nebulizer and spray pump [Concomitant]
  7. symbcort [Concomitant]
  8. clobetasol ointment 0.05% [Concomitant]
  9. licinopril 5mg [Concomitant]
  10. ondansetron 8mg tablet and 4mg that desolves u der tounge [Concomitant]
  11. fluconazole tablet 150 MG [Concomitant]
  12. hydrochlorothiazide if need during summer 24mg [Concomitant]
  13. fluticasone nasal spray lantus insulin [Concomitant]
  14. es promethazine [Concomitant]
  15. MYLANTA [Concomitant]
     Active Substance: ALUMINUM HYDROXIDE\DIMETHICONE\MAGNESIUM HYDROXIDE
  16. TUMS [Concomitant]
     Active Substance: CALCIUM CARBONATE
  17. nauzene [Concomitant]
  18. GAS-X [Concomitant]
     Active Substance: DIMETHICONE
  19. imodium gaviscon [Concomitant]
  20. PEPTO-BISMOL [Concomitant]
     Active Substance: BISMUTH SUBSALICYLATE
  21. off an 9n prednisone [Concomitant]
  22. OZEMPIC [Concomitant]
     Active Substance: SEMAGLUTIDE

REACTIONS (10)
  - Nausea [None]
  - Feeling of body temperature change [None]
  - Pain [None]
  - Asthma [None]
  - Influenza [None]
  - Dizziness [None]
  - Back pain [None]
  - Musculoskeletal stiffness [None]
  - Blood glucose decreased [None]
  - Fatigue [None]

NARRATIVE: CASE EVENT DATE: 20250514
